FAERS Safety Report 6912992-7 (Version None)
Quarter: 2010Q3

REPORT INFORMATION
  Report Type: 
  Country: None (occurrence: None)
  Receive Date: 20100806
  Receipt Date: 20090515
  Transmission Date: 20110219
  Serious: No
  Sender: FDA-Public Use
  Company Number: US-PFIZER INC-2009216057

PATIENT
  Sex: Female
  Weight: 56.7 kg

DRUGS (3)
  1. DETROL LA [Suspect]
     Indication: POLLAKIURIA
     Route: 048
     Dates: start: 20090512
  2. PHENYTOIN [Concomitant]
     Indication: EPILEPSY
  3. CLARITIN [Concomitant]

REACTIONS (3)
  - DRUG DOSE OMISSION [None]
  - PRURITUS [None]
  - RASH [None]
